FAERS Safety Report 15522600 (Version 1)
Quarter: 2018Q4

REPORT INFORMATION
  Report Type: Report from Study
  Country: US (occurrence: US)
  Receive Date: 20181017
  Receipt Date: 20181017
  Transmission Date: 20190205
  Serious: No
  Sender: FDA-Public Use
  Company Number: US-AMGEN-USASL2018109646

PATIENT
  Age: 81 Year
  Sex: Female

DRUGS (2)
  1. REPATHA [Suspect]
     Active Substance: EVOLOCUMAB
     Indication: BLOOD CHOLESTEROL INCREASED
  2. REPATHA [Suspect]
     Active Substance: EVOLOCUMAB
     Indication: TYPE IIA HYPERLIPIDAEMIA
     Dosage: 140 MG, Q2WK
     Route: 065

REACTIONS (10)
  - Pruritus [Unknown]
  - Laryngitis [Recovering/Resolving]
  - Pain in extremity [Unknown]
  - Periarthritis [Unknown]
  - Capillary disorder [Unknown]
  - Injection site haemorrhage [Unknown]
  - Back pain [Unknown]
  - Skin mass [Unknown]
  - Skin discolouration [Not Recovered/Not Resolved]
  - Fasciitis [Unknown]

NARRATIVE: CASE EVENT DATE: 20180824
